FAERS Safety Report 25858639 (Version 1)
Quarter: 2025Q3

REPORT INFORMATION
  Report Type: Spontaneous
  Country: EU (occurrence: EU)
  Receive Date: 20250929
  Receipt Date: 20250929
  Transmission Date: 20251021
  Serious: Yes (Hospitalization, Other)
  Sender: BRISTOL-MYERS SQUIBB COMPANY
  Company Number: EU-BRISTOL-MYERS SQUIBB COMPANY-2025-130495

PATIENT
  Age: 57 Year
  Sex: Male

DRUGS (6)
  1. NIVOLUMAB [Suspect]
     Active Substance: NIVOLUMAB
     Indication: Non-small cell lung cancer
     Dates: start: 202211, end: 202301
  2. NIVOLUMAB [Suspect]
     Active Substance: NIVOLUMAB
     Indication: Bronchial carcinoma
  3. PACLITAXEL [Suspect]
     Active Substance: PACLITAXEL
     Indication: Non-small cell lung cancer
     Dates: start: 202211, end: 202301
  4. PACLITAXEL [Suspect]
     Active Substance: PACLITAXEL
     Indication: Bronchial carcinoma
  5. CARBOPLATIN [Suspect]
     Active Substance: CARBOPLATIN
     Indication: Non-small cell lung cancer
     Dates: start: 202211, end: 202301
  6. CARBOPLATIN [Suspect]
     Active Substance: CARBOPLATIN
     Indication: Bronchial carcinoma

REACTIONS (4)
  - General physical health deterioration [Unknown]
  - Weight decreased [Unknown]
  - Hyponatraemia [Unknown]
  - Hypothyroidism [Unknown]

NARRATIVE: CASE EVENT DATE: 20230401
